FAERS Safety Report 16299412 (Version 1)
Quarter: 2019Q2

REPORT INFORMATION
  Report Type: Report from Study
  Country: IT (occurrence: IT)
  Receive Date: 20190510
  Receipt Date: 20190510
  Transmission Date: 20190711
  Serious: Yes (Hospitalization)
  Sender: FDA-Public Use
  Company Number: IT-TEVA-2019-IT-1046388

PATIENT
  Age: 85 Year
  Sex: Female

DRUGS (1)
  1. REPAGLINIDE. [Suspect]
     Active Substance: REPAGLINIDE
     Indication: TYPE 2 DIABETES MELLITUS
     Route: 048

REACTIONS (3)
  - Hypoglycaemia [Recovering/Resolving]
  - Aphasia [Recovering/Resolving]
  - Facial paresis [Recovering/Resolving]

NARRATIVE: CASE EVENT DATE: 20190103
